FAERS Safety Report 15538685 (Version 1)
Quarter: 2018Q4

REPORT INFORMATION
  Report Type: Spontaneous
  Country: US (occurrence: US)
  Receive Date: 20181022
  Receipt Date: 20181022
  Transmission Date: 20190205
  Serious: No
  Sender: FDA-Public Use
  Company Number: US-GLAXOSMITHKLINE-US2018186471

PATIENT
  Age: 55 Year
  Sex: Male

DRUGS (1)
  1. NICODERM CQ [Suspect]
     Active Substance: NICOTINE
     Indication: SMOKING CESSATION THERAPY
     Dosage: 21 MG, PRN
     Route: 061
     Dates: start: 20181006, end: 20181011

REACTIONS (4)
  - Application site swelling [Unknown]
  - Application site erythema [Unknown]
  - Application site pruritus [Unknown]
  - Application site rash [Unknown]
